FAERS Safety Report 9238915 (Version 1)
Quarter: 2013Q2

REPORT INFORMATION
  Report Type: Spontaneous
  Country: US (occurrence: US)
  Receive Date: 20130418
  Receipt Date: 20130418
  Transmission Date: 20140414
  Serious: Yes (Hospitalization)
  Sender: FDA-Public Use
  Company Number: US-AMGEN-USASP2013026631

PATIENT
  Age: 25 Year
  Sex: Female

DRUGS (4)
  1. ENBREL [Suspect]
     Indication: RHEUMATOID ARTHRITIS
     Dosage: 50 MG, QWK
     Dates: start: 20030515
  2. ENBREL [Suspect]
     Indication: PSORIASIS
  3. METHOTREXATE [Concomitant]
     Dosage: 20 MG, QWK
     Route: 048
     Dates: start: 2001
  4. REMICADE [Concomitant]
     Dosage: UNK

REACTIONS (9)
  - Intervertebral disc protrusion [Recovered/Resolved]
  - Spinal column stenosis [Recovered/Resolved]
  - Carpal tunnel syndrome [Not Recovered/Not Resolved]
  - Drug effect incomplete [Not Recovered/Not Resolved]
  - Cheilitis [Not Recovered/Not Resolved]
  - Lip haemorrhage [Not Recovered/Not Resolved]
  - Infection [Recovered/Resolved]
  - Bronchitis [Recovered/Resolved]
  - Atypical pneumonia [Recovered/Resolved]
